FAERS Safety Report 12290321 (Version 1)
Quarter: 2016Q2

REPORT INFORMATION
  Report Type: Spontaneous
  Country: CA (occurrence: CA)
  Receive Date: 20160421
  Receipt Date: 20160421
  Transmission Date: 20160815
  Serious: Yes (Life-Threatening, Hospitalization, Disabling)
  Sender: FDA-Public Use
  Company Number: CA-NOVOPROD-488417

PATIENT
  Age: 63 Year
  Sex: Female
  Weight: 73 kg

DRUGS (8)
  1. INVOKANA [Suspect]
     Active Substance: CANAGLIFLOZIN
     Indication: TYPE 2 DIABETES MELLITUS
     Dosage: 330 MG, QD (3 MONTHS)
     Route: 065
  2. LANTUS [Suspect]
     Active Substance: INSULIN GLARGINE
     Indication: TYPE 2 DIABETES MELLITUS
     Dosage: 10 IU
     Route: 058
  3. BETAHISTINE MESILATE [Concomitant]
     Active Substance: BETAHISTINE MESILATE
     Dosage: UNK
     Route: 065
  4. INVOKANA [Suspect]
     Active Substance: CANAGLIFLOZIN
     Dosage: 100 MG (DURATION -330.0)
  5. OXYBUTYNIN HYDROCHLORIDE [Concomitant]
     Active Substance: OXYBUTYNIN CHLORIDE
     Dosage: UNK
     Route: 065
  6. LOSEC [Concomitant]
     Active Substance: OMEPRAZOLE
     Dosage: UNK
     Route: 065
  7. VICTOZA [Suspect]
     Active Substance: LIRAGLUTIDE
     Indication: TYPE 2 DIABETES MELLITUS
     Dosage: 1.8 MG
     Route: 058
  8. ATORVASTATIN [Concomitant]
     Active Substance: ATORVASTATIN
     Dosage: UNK
     Route: 065

REACTIONS (15)
  - Osmolar gap increased [Recovered/Resolved]
  - Renal abscess [Recovered/Resolved]
  - Cognitive disorder [Recovered/Resolved]
  - Pyelonephritis [Recovered/Resolved]
  - Loss of consciousness [Recovered/Resolved]
  - Diabetic ketoacidosis [Recovered/Resolved]
  - Delirium [Recovered/Resolved]
  - Hypothermia [Recovered/Resolved]
  - Subdural haemorrhage [Recovered/Resolved]
  - Pain [Recovered/Resolved]
  - Cerebrovascular accident [Recovered/Resolved]
  - Subarachnoid haemorrhage [Recovered/Resolved]
  - Hypernatraemia [Recovered/Resolved]
  - Acute kidney injury [Recovered/Resolved]
  - Posterior reversible encephalopathy syndrome [Recovered/Resolved]
